FAERS Safety Report 19944709 (Version 2)
Quarter: 2021Q4

REPORT INFORMATION
  Report Type: Spontaneous
  Country: CN (occurrence: CN)
  Receive Date: 20211011
  Receipt Date: 20211119
  Transmission Date: 20220303
  Serious: Yes (Disabling)
  Sender: FDA-Public Use
  Company Number: CN-009507513-2110CHN001465

PATIENT
  Age: 58 Year
  Sex: Female
  Weight: 62.7 kg

DRUGS (3)
  1. CILASTATIN SODIUM\IMIPENEM [Suspect]
     Active Substance: CILASTATIN SODIUM\IMIPENEM
     Indication: Anti-infective therapy
     Dosage: 1 G, Q6H
     Route: 041
     Dates: start: 20210701, end: 20210705
  2. TEICOPLANIN [Suspect]
     Active Substance: TEICOPLANIN
     Indication: Anti-infective therapy
     Dosage: 0.2 G, QD
     Route: 041
     Dates: start: 20210702, end: 20210705
  3. FLUCONAZOLE [Suspect]
     Active Substance: FLUCONAZOLE
     Indication: Antifungal treatment
     Dosage: 0.4 G, QD
     Route: 041
     Dates: start: 20210702, end: 20210705

REACTIONS (1)
  - Drug eruption [Unknown]

NARRATIVE: CASE EVENT DATE: 20210705
